FAERS Safety Report 26022421 (Version 1)
Quarter: 2025Q4

REPORT INFORMATION
  Report Type: Spontaneous
  Country: TW (occurrence: TW)
  Receive Date: 20251110
  Receipt Date: 20251110
  Transmission Date: 20260117
  Serious: Yes (Other)
  Sender: FRESENIUS KABI
  Company Number: TW-FreseniusKabi-FK202514789

PATIENT
  Age: 60 Year
  Sex: Male
  Weight: 58.4 kg

DRUGS (10)
  1. CISPLATIN [Suspect]
     Active Substance: CISPLATIN
     Indication: Oesophageal carcinoma
     Dosage: INTRAVENOUS DRIP?FOA: INJECTION?C3D1?ADDED TO NS 500 ML, INFUSED FOR 90 MINUTES AT A RATE OF 367 ML/
     Route: 041
     Dates: start: 20251021, end: 20251021
  2. EMEND IV 150mg Powder for Injection [Concomitant]
     Indication: Premedication
     Dosage: POWDER FOR INJECTION
     Dates: start: 20251021, end: 20251021
  3. PRIMPERAN 10MG/2ML INJECTABLE SOLUTION [Concomitant]
     Indication: Premedication
     Dosage: INJECTABLE SOLUTION
     Dates: start: 20251021, end: 20251021
  4. Diphenhydramine Hydrochloride Injection 3% Y.Y [Concomitant]
     Indication: Premedication
     Dates: start: 20251021, end: 20251021
  5. RINDERON INJECTION 4MG/ML (BETAME THASONE ) [Concomitant]
     Indication: Premedication
     Dates: start: 20251021, end: 20251021
  6. OPDIVO (nivolumab ) Injection 10mg/mL [Concomitant]
     Indication: Oesophageal carcinoma
     Dosage: INJECTION
     Dates: start: 20251021, end: 20251021
  7. Aloxi Solution for Injection [Concomitant]
     Indication: Premedication
     Dosage: SOLUTION FOR INJECTION
     Dates: start: 20251021, end: 20251021
  8. SODIUM CHLORIDE [Concomitant]
     Active Substance: SODIUM CHLORIDE
     Indication: Vehicle solution use
  9. FLUOROURACIL [Concomitant]
     Active Substance: FLUOROURACIL
     Indication: Product used for unknown indication
  10. Covorin [Concomitant]
     Indication: Product used for unknown indication

REACTIONS (3)
  - Chills [Recovered/Resolved]
  - Pyrexia [Recovered/Resolved]
  - Oxygen saturation decreased [Recovered/Resolved]

NARRATIVE: CASE EVENT DATE: 20251021
